FAERS Safety Report 9727617 (Version 1)
Quarter: 2013Q4

REPORT INFORMATION
  Report Type: Spontaneous
  Country: GB (occurrence: GB)
  Receive Date: 20131203
  Receipt Date: 20131203
  Transmission Date: 20140711
  Serious: Yes (Other)
  Sender: FDA-Public Use
  Company Number: GB-BAXTER-2013BAX047004

PATIENT
  Sex: Female

DRUGS (1)
  1. FLUCONAZOLE REDIBAG 2 MG/ML SOLUTION FOR INFUSION [Suspect]
     Indication: CANDIDA INFECTION
     Dates: start: 2010

REACTIONS (2)
  - Drug resistance [Unknown]
  - Drug ineffective [Unknown]
